APPROVED DRUG PRODUCT: ENTECAVIR
Active Ingredient: ENTECAVIR
Strength: 1MG
Dosage Form/Route: TABLET;ORAL
Application: A208721 | Product #002
Applicant: BRECKENRIDGE PHARMACEUTICAL INC
Approved: Mar 15, 2018 | RLD: No | RS: No | Type: DISCN